FAERS Safety Report 10631749 (Version 2)
Quarter: 2014Q4

REPORT INFORMATION
  Report Type: Spontaneous
  Country: JP (occurrence: JP)
  Receive Date: 20141205
  Receipt Date: 20141215
  Transmission Date: 20150529
  Serious: Yes (Hospitalization)
  Sender: FDA-Public Use
  Company Number: PHHY2014JP158476

PATIENT

DRUGS (2)
  1. EXELON PATCH [Suspect]
     Active Substance: RIVASTIGMINE
     Dosage: 9.5 MG (RIVASTIGMINE BASE 18MG), QD
     Route: 062
  2. EXELON PATCH [Suspect]
     Active Substance: RIVASTIGMINE
     Indication: DEMENTIA ALZHEIMER^S TYPE
     Dosage: 6.9 MG (RIVASTIGMINE BASE 13.5MG), QD
     Route: 062

REACTIONS (2)
  - Tachycardia [Recovering/Resolving]
  - Speech disorder [Unknown]
